FAERS Safety Report 8974135 (Version 1)
Quarter: 2012Q4

REPORT INFORMATION
  Report Type: Spontaneous
  Country: US (occurrence: None)
  Receive Date: 20121213
  Receipt Date: 20121213
  Transmission Date: 20130627
  Serious: Yes (Hospitalization)
  Sender: FDA-Public Use
  Company Number: None

PATIENT
  Age: 85 Year
  Sex: Female

DRUGS (1)
  1. LABETALOL [Suspect]
     Dosage: 100 MG PO BID
     Route: 048
     Dates: start: 20120501, end: 20120918

REACTIONS (2)
  - Dizziness [None]
  - Heart rate decreased [None]
